FAERS Safety Report 10170907 (Version 1)
Quarter: 2014Q2

REPORT INFORMATION
  Report Type: Spontaneous
  Country: US (occurrence: None)
  Receive Date: 20140513
  Receipt Date: 20140513
  Transmission Date: 20141212
  Serious: Yes (Life-Threatening, Other)
  Sender: FDA-Public Use
  Company Number: None

PATIENT
  Age: 62 Year
  Sex: Male
  Weight: 77.11 kg

DRUGS (8)
  1. ACYCLOVIR [Suspect]
     Indication: ILL-DEFINED DISORDER
     Dates: start: 20130207, end: 20130211
  2. ACYCLOVIR [Suspect]
     Indication: IMMUNISATION
     Dates: start: 20130207, end: 20130211
  3. HYDROXYINE HCL [Concomitant]
  4. NEOMYCIN AND POLYMYXIN B SULFATES [Concomitant]
  5. CENTRUM [Concomitant]
  6. BABY ASPIRIN [Concomitant]
  7. SMZ/TMP DS [Suspect]
     Indication: WOUND
     Dates: start: 20130207, end: 20130211
  8. SHINGLES VACCINE [Suspect]

REACTIONS (8)
  - Rash [None]
  - Blister [None]
  - Pain [None]
  - Pruritus [None]
  - Pyrexia [None]
  - Headache [None]
  - Chills [None]
  - Insomnia [None]
